FAERS Safety Report 5289417-3 (Version None)
Quarter: 2007Q2

REPORT INFORMATION
  Report Type: 
  Country: None (occurrence: None)
  Receive Date: 20070404
  Receipt Date: 20070404
  Transmission Date: 20071010
  Serious: Yes (Other)
  Sender: FDA-Public Use
  Company Number: None

PATIENT
  Age: 56 Year
  Sex: Male
  Weight: 58 kg

DRUGS (11)
  1. RITALIN [Suspect]
     Indication: NARCOLEPSY
     Dosage: 5 MG QDAY PO
     Route: 048
     Dates: start: 20070318
  2. DILANTIN [Suspect]
     Indication: CONVULSION
     Dates: start: 20070312, end: 20070401
  3. CIPRO [Concomitant]
  4. DEPACON [Concomitant]
  5. LOVENOX [Concomitant]
  6. TOBRAMYCIN [Concomitant]
  7. GLYBURIDE [Concomitant]
  8. CARDIZEM [Concomitant]
  9. PROTONIX [Concomitant]
  10. COUMADIN [Concomitant]
  11. LEXAPRO [Concomitant]

REACTIONS (1)
  - BODY TEMPERATURE INCREASED [None]
